FAERS Safety Report 20581349 (Version 1)
Quarter: 2022Q1

REPORT INFORMATION
  Report Type: Spontaneous
  Country: NL (occurrence: NL)
  Receive Date: 20220311
  Receipt Date: 20220311
  Transmission Date: 20220423
  Serious: Yes (Other)
  Sender: FDA-Public Use
  Company Number: None

PATIENT
  Age: 62 Year
  Sex: Male
  Weight: 85.5 kg

DRUGS (2)
  1. METOPROLOL [Suspect]
     Active Substance: METOPROLOL
     Indication: Arrhythmia
     Dosage: 50 MICROGRAM DAILY; 1 PER DAY 1 PIECE,  MGA FORM STRENGTH: 50MG (SUCCINATE) / BRAND NAME NOT SPECIFI
     Dates: start: 2022
  2. OMEPRAZOLE [Concomitant]
     Active Substance: OMEPRAZOLE
     Dosage: THERAPY START DATE AND END DATE: ASKU, FORM STRENGTH:2MG/ML, UNIT DOSE: 40 MG

REACTIONS (3)
  - Erectile dysfunction [Not Recovered/Not Resolved]
  - Peripheral coldness [Not Recovered/Not Resolved]
  - Fatigue [Not Recovered/Not Resolved]

NARRATIVE: CASE EVENT DATE: 20220202
